FAERS Safety Report 5621621-4 (Version None)
Quarter: 2008Q1

REPORT INFORMATION
  Report Type: 
  Country: None (occurrence: None)
  Receive Date: 20080211
  Receipt Date: 20080201
  Transmission Date: 20080703
  Serious: Yes (Other)
  Sender: FDA-Public Use
  Company Number: PHBS2008HK01706

PATIENT
  Age: 42 Year
  Sex: Male

DRUGS (3)
  1. CYCLOSPORINE [Suspect]
     Indication: RENAL TRANSPLANT
     Route: 065
  2. AZATHIOPRINE [Suspect]
     Indication: RENAL TRANSPLANT
     Route: 065
  3. PREDNISOLONE [Concomitant]
     Indication: RENAL TRANSPLANT

REACTIONS (7)
  - CYTOMEGALOVIRUS INFECTION [None]
  - LEUKOPENIA [None]
  - LUNG ABSCESS [None]
  - MYOCARDIAL ISCHAEMIA [None]
  - NEUTROPHIL COUNT DECREASED [None]
  - PRODUCTIVE COUGH [None]
  - RHODOCOCCUS INFECTION [None]
